FAERS Safety Report 5466789-8 (Version None)
Quarter: 2007Q3

REPORT INFORMATION
  Report Type: 
  Country: None (occurrence: None)
  Receive Date: 20070925
  Receipt Date: 20070816
  Transmission Date: 20080115
  Serious: No
  Sender: FDA-Public Use
  Company Number: US-JNJFOC-20070803967

PATIENT
  Age: 34 Year
  Sex: Female
  Weight: 104.33 kg

DRUGS (4)
  1. INVEGA [Suspect]
     Indication: BIPOLAR DISORDER
     Route: 048
     Dates: start: 20070701, end: 20070813
  2. CYMBALTA [Concomitant]
     Route: 048
  3. KLONOPIN [Concomitant]
     Route: 048
  4. AMBIEN CR [Concomitant]
     Route: 048

REACTIONS (7)
  - DIARRHOEA [None]
  - DYSARTHRIA [None]
  - MUSCULAR WEAKNESS [None]
  - MUSCULOSKELETAL STIFFNESS [None]
  - MYALGIA [None]
  - NAUSEA [None]
  - SALIVARY HYPERSECRETION [None]
